FAERS Safety Report 5469973-2 (Version None)
Quarter: 2007Q3

REPORT INFORMATION
  Report Type: 
  Country: None (occurrence: None)
  Receive Date: 20070927
  Receipt Date: 20070920
  Transmission Date: 20080115
  Serious: Yes (Hospitalization)
  Sender: FDA-Public Use
  Company Number: US-ELI_LILLY_AND_COMPANY-US200709004465

PATIENT
  Age: 75 Year
  Sex: Male

DRUGS (4)
  1. BYETTA [Suspect]
     Indication: TYPE 2 DIABETES MELLITUS
     Dosage: 5 UG, 2/D
     Route: 058
     Dates: start: 20060101, end: 20060101
  2. BYETTA [Suspect]
     Dosage: 10 UG, 2/D
     Route: 058
     Dates: start: 20060101
  3. METFORMIN [Concomitant]
     Dosage: UNK, UNKNOWN
  4. GLYBURIDE [Concomitant]
     Dosage: UNK, UNKNOWN

REACTIONS (2)
  - AORTIC VALVE DISEASE [None]
  - BLOOD GLUCOSE INCREASED [None]
